FAERS Safety Report 4663856-3 (Version None)
Quarter: 2005Q2

REPORT INFORMATION
  Report Type: 
  Country: None (occurrence: None)
  Receive Date: 20050516
  Receipt Date: 20050428
  Transmission Date: 20051028
  Serious: Yes (Hospitalization)
  Sender: FDA-Public Use
  Company Number: DSA_26391_2005

PATIENT
  Age: 78 Year
  Sex: Female

DRUGS (2)
  1. MASDIL [Suspect]
     Indication: ESSENTIAL HYPERTENSION
     Dosage: 120 MG Q DAY PO
     Route: 048
     Dates: start: 20020801, end: 20030112
  2. ISODIUR [Suspect]
     Indication: ESSENTIAL HYPERTENSION
     Dosage: 5 MG Q DAY PO
     Route: 048
     Dates: start: 20020801, end: 20030112

REACTIONS (3)
  - DRUG INTERACTION [None]
  - HEADACHE [None]
  - SYNCOPE [None]
